FAERS Safety Report 6303596-8 (Version None)
Quarter: 2009Q3

REPORT INFORMATION
  Report Type: 
  Country: None (occurrence: None)
  Receive Date: 20090807
  Receipt Date: 20090807
  Transmission Date: 20100115
  Serious: No
  Sender: FDA-Public Use
  Company Number: None

PATIENT
  Sex: Male
  Weight: 63.1 kg

DRUGS (1)
  1. LAMOTRIGINE [Suspect]
     Indication: CONVULSION
     Dosage: UNKNOW PO
     Route: 048
     Dates: start: 20090511, end: 20090529

REACTIONS (1)
  - STEVENS-JOHNSON SYNDROME [None]
